FAERS Safety Report 13885722 (Version 2)
Quarter: 2018Q1

REPORT INFORMATION
  Report Type: Report from Study
  Country: US (occurrence: US)
  Receive Date: 20170821
  Receipt Date: 20180118
  Transmission Date: 20180508
  Serious: No
  Sender: FDA-Public Use
  Company Number: PHEH2017US026472

PATIENT

DRUGS (3)
  1. SIGNIFOR LAR [Suspect]
     Active Substance: PASIREOTIDE
     Indication: GIGANTISM
  2. SIGNIFOR LAR [Suspect]
     Active Substance: PASIREOTIDE
     Indication: PITUITARY TUMOUR BENIGN
     Dosage: 60 MG, QMO
     Route: 030
  3. SIGNIFOR LAR [Suspect]
     Active Substance: PASIREOTIDE
     Indication: ACROMEGALY

REACTIONS (1)
  - Inappropriate schedule of drug administration [Unknown]
